FAERS Safety Report 12856485 (Version 4)
Quarter: 2017Q1

REPORT INFORMATION
  Report Type: Spontaneous
  Country: US (occurrence: US)
  Receive Date: 20161018
  Receipt Date: 20170223
  Transmission Date: 20170428
  Serious: Yes (Other)
  Sender: FDA-Public Use
  Company Number: US-009507513-1610USA008915

PATIENT
  Age: 62 Year
  Sex: Female
  Weight: 87 kg

DRUGS (1)
  1. NOXAFIL [Suspect]
     Active Substance: POSACONAZOLE
     Indication: MUCORMYCOSIS
     Dosage: 300 MG, QD
     Route: 048
     Dates: start: 20160606, end: 20161023

REACTIONS (19)
  - Cardiomegaly [Unknown]
  - Dyspnoea [Unknown]
  - Aspartate aminotransferase increased [Unknown]
  - Nausea [Recovering/Resolving]
  - Drug prescribing error [Unknown]
  - Drug intolerance [Unknown]
  - Blood phosphorus increased [Unknown]
  - Brain natriuretic peptide increased [Unknown]
  - Constipation [Unknown]
  - Lung abscess [Unknown]
  - Carbon dioxide increased [Unknown]
  - Bradycardia [Unknown]
  - Thrombocytopenia [Unknown]
  - Blood sodium decreased [Unknown]
  - Blood urea decreased [Unknown]
  - Blood alkaline phosphatase increased [Unknown]
  - Blood calcium decreased [Unknown]
  - Hypokalaemia [Unknown]
  - Pulmonary mass [Unknown]

NARRATIVE: CASE EVENT DATE: 2016
